FAERS Safety Report 8362063-0 (Version None)
Quarter: 2012Q2

REPORT INFORMATION
  Report Type: 
  Country: None (occurrence: None)
  Receive Date: 20120515
  Receipt Date: 20120508
  Transmission Date: 20120825
  Serious: Yes (Other)
  Sender: FDA-Public Use
  Company Number: US-ALLERGAN-1206576US

PATIENT
  Age: 58 Year
  Sex: Female

DRUGS (4)
  1. LATISSE [Suspect]
     Indication: GROWTH OF EYELASHES
     Dosage: 2 GTT, QHS
     Route: 061
     Dates: start: 20120313, end: 20120410
  2. ESTRADIOL, COMBINATIONS [Concomitant]
     Indication: HORMONE REPLACEMENT THERAPY
     Dosage: UNK
     Route: 048
  3. LATISSE [Suspect]
     Dosage: 2 GTT, QHS
     Route: 061
     Dates: start: 20120423, end: 20120505
  4. HYDROCHLOROTHIAZIDE [Concomitant]
     Indication: HYPERTENSION
     Dosage: 25 MG, QD
     Route: 048

REACTIONS (7)
  - OCULAR DISCOMFORT [None]
  - EYE COMPLICATION ASSOCIATED WITH DEVICE [None]
  - WRONG TECHNIQUE IN DRUG USAGE PROCESS [None]
  - CONJUNCTIVITIS [None]
  - KERATITIS [None]
  - CORNEAL ABRASION [None]
  - INJURY CORNEAL [None]
